FAERS Safety Report 10425106 (Version 1)
Quarter: 2014Q3

REPORT INFORMATION
  Report Type: Spontaneous
  Country: CN (occurrence: CN)
  Receive Date: 20140902
  Receipt Date: 20140902
  Transmission Date: 20150326
  Serious: Yes (Hospitalization)
  Sender: FDA-Public Use
  Company Number: CN-GLAXOSMITHKLINE-B1024785A

PATIENT
  Age: 51 Year
  Sex: Male

DRUGS (2)
  1. ADEFOVIR DIPIVOXIL. [Suspect]
     Active Substance: ADEFOVIR DIPIVOXIL
     Indication: CHRONIC HEPATITIS B
     Dosage: 10MG PER DAY
     Route: 065
     Dates: start: 2006
  2. EPIVIR [Suspect]
     Active Substance: LAMIVUDINE
     Indication: CHRONIC HEPATITIS B
     Route: 065
     Dates: start: 2004, end: 2006

REACTIONS (13)
  - Drug resistance [Unknown]
  - Osteoporosis [Unknown]
  - Pain [Unknown]
  - Tenderness [Unknown]
  - Hypophosphataemia [Recovering/Resolving]
  - Movement disorder [Unknown]
  - Osteomalacia [Recovering/Resolving]
  - Initial insomnia [Unknown]
  - Bone disorder [Unknown]
  - Hyperreflexia [Unknown]
  - Cough [Unknown]
  - Nasopharyngitis [Unknown]
  - Urine phosphorus decreased [Unknown]
